FAERS Safety Report 21372882 (Version 1)
Quarter: 2022Q3

REPORT INFORMATION
  Report Type: Report from Study
  Country: US (occurrence: US)
  Receive Date: 20220924
  Receipt Date: 20220924
  Transmission Date: 20221027
  Serious: Yes (Other)
  Sender: FDA-Public Use
  Company Number: US-ABBVIE-4128490

PATIENT
  Sex: Male

DRUGS (1)
  1. HUMIRA [Suspect]
     Active Substance: ADALIMUMAB
     Indication: Product used for unknown indication
     Route: 058

REACTIONS (8)
  - Anthrax [Unknown]
  - Wrong technique in product usage process [Not Recovered/Not Resolved]
  - Rectal haemorrhage [Unknown]
  - Frequent bowel movements [Unknown]
  - Duodenogastric reflux [Unknown]
  - Faeces discoloured [Unknown]
  - Feeding disorder [Unknown]
  - Joint destruction [Unknown]
